FAERS Safety Report 10640201 (Version 1)
Quarter: 2014Q4

REPORT INFORMATION
  Report Type: Spontaneous
  Country: US (occurrence: None)
  Receive Date: 20141208
  Receipt Date: 20141208
  Transmission Date: 20150529
  Serious: Yes (Hospitalization, Disabling, Other)
  Sender: FDA-Public Use
  Company Number: None

PATIENT
  Age: 33 Year
  Sex: Female
  Weight: 79.38 kg

DRUGS (1)
  1. LORATADINE/PSEUDOEPHEDRINE [Suspect]
     Active Substance: LORATADINE\PSEUDOEPHEDRINE SULFATE
     Indication: SINUS HEADACHE
     Dosage: ONE PILL, DOSE
     Route: 048

REACTIONS (5)
  - Impaired driving ability [None]
  - Impaired work ability [None]
  - Dizziness [None]
  - Vertigo [None]
  - Bedridden [None]

NARRATIVE: CASE EVENT DATE: 20130727
